FAERS Safety Report 11530429 (Version 1)
Quarter: 2015Q3

REPORT INFORMATION
  Report Type: Spontaneous
  Country: US (occurrence: US)
  Receive Date: 20150921
  Receipt Date: 20150921
  Transmission Date: 20151125
  Serious: No
  Sender: FDA-Public Use
  Company Number: US-GLAXOSMITHKLINE-US2015GSK130178

PATIENT

DRUGS (6)
  1. ZOFRAN [Suspect]
     Active Substance: ONDANSETRON HYDROCHLORIDE
     Indication: NAUSEA
     Dosage: UNK, U
     Route: 065
  2. XANAX [Suspect]
     Active Substance: ALPRAZOLAM
     Indication: VOMITING
  3. XANAX [Suspect]
     Active Substance: ALPRAZOLAM
     Indication: NAUSEA
     Dosage: UNK, U
     Route: 065
  4. LEVSIN [Suspect]
     Active Substance: HYOSCYAMINE SULFATE
     Indication: NAUSEA
     Dosage: UNK, U
     Route: 065
  5. ZOFRAN [Suspect]
     Active Substance: ONDANSETRON HYDROCHLORIDE
     Indication: VOMITING
  6. LEVSIN [Suspect]
     Active Substance: HYOSCYAMINE SULFATE
     Indication: VOMITING

REACTIONS (1)
  - Drug ineffective [Recovered/Resolved]
